FAERS Safety Report 5847739-9 (Version None)
Quarter: 2008Q3

REPORT INFORMATION
  Report Type: 
  Country: None (occurrence: None)
  Receive Date: 20080814
  Receipt Date: 20080728
  Transmission Date: 20090109
  Serious: Yes (Hospitalization)
  Sender: FDA-Public Use
  Company Number: 2008S1013351

PATIENT
  Age: 58 Year
  Sex: Female

DRUGS (1)
  1. TERBINAFINE HYDROCHLORIDE [Suspect]
     Indication: ONYCHOMYCOSIS
     Dosage: ORAL
     Route: 048

REACTIONS (1)
  - CUTANEOUS LUPUS ERYTHEMATOSUS [None]
